FAERS Safety Report 18315419 (Version 2)
Quarter: 2023Q1

REPORT INFORMATION
  Report Type: Spontaneous
  Country: DE (occurrence: DE)
  Receive Date: 20200926
  Receipt Date: 20230201
  Transmission Date: 20230418
  Serious: Yes (Hospitalization)
  Sender: FDA-Public Use
  Company Number: DE-ADRED-05580-01

PATIENT
  Age: 62 Year
  Sex: Male

DRUGS (19)
  1. TORSEMIDE [Suspect]
     Active Substance: TORSEMIDE
     Indication: Product used for unknown indication
     Dosage: 4 DOSAGE FORMS DAILY; 20 MG, 2-2-0-0
  2. EZETIMIBE [Suspect]
     Active Substance: EZETIMIBE
     Indication: Product used for unknown indication
     Dosage: 10 MILLIGRAM DAILY; 1-0-0-0
  3. ATORVASTATIN [Suspect]
     Active Substance: ATORVASTATIN
     Indication: Product used for unknown indication
     Dosage: 40 MILLIGRAM DAILY; 0-0-1-0
  4. SPIRONOLACTONE [Suspect]
     Active Substance: SPIRONOLACTONE
     Indication: Product used for unknown indication
     Dosage: .5 DOSAGE FORMS DAILY; 50 MG, 0.5-0-0-0
  5. IBUPROFEN [Suspect]
     Active Substance: IBUPROFEN
     Indication: Product used for unknown indication
     Dosage: 600 MILLIGRAM DAILY; 1-0-0-0
  6. INDAPAMIDE\PERINDOPRIL [Suspect]
     Active Substance: INDAPAMIDE\PERINDOPRIL
     Indication: Product used for unknown indication
     Dosage: 1 DOSAGE FORMS DAILY; 1.25|5 MG, 1-0-0-0
  7. LERCANIDIPINE [Suspect]
     Active Substance: LERCANIDIPINE
     Indication: Product used for unknown indication
     Dosage: 1 DOSAGE FORMS DAILY; 20 MG, 0.5-0-0.5-0
  8. CHOLECALCIFEROL [Concomitant]
     Active Substance: CHOLECALCIFEROL
     Indication: Product used for unknown indication
     Dosage: 1000 IU (INTERNATIONAL UNIT) DAILY;  0-1-0-0
  9. VERAPAMIL [Concomitant]
     Active Substance: VERAPAMIL HYDROCHLORIDE
     Indication: Product used for unknown indication
     Dosage: 240 MILLIGRAM DAILY; 120 MG, 1-0-1-0
  10. TAMSULOSIN [Concomitant]
     Active Substance: TAMSULOSIN
     Indication: Product used for unknown indication
     Dosage: .4 MILLIGRAM DAILY; 1-0-0-0
  11. BUPROPION [Concomitant]
     Active Substance: BUPROPION
     Indication: Product used for unknown indication
     Dosage: 150 MG, AS NEEDED
  12. ALBUTEROL [Concomitant]
     Active Substance: ALBUTEROL
     Indication: Product used for unknown indication
     Dosage: 0.1 MG, REQUIREMENT, METERED DOSE INHALER
  13. NITROGLYCERIN [Concomitant]
     Active Substance: NITROGLYCERIN
     Indication: Product used for unknown indication
     Dosage: 0.4 MG, REQUIREMENT
  14. OMEPRAZOLE [Concomitant]
     Active Substance: OMEPRAZOLE
     Indication: Product used for unknown indication
     Dosage: 40 MILLIGRAM DAILY; 0-0-1-0
  15. ACTRAPID [Concomitant]
     Active Substance: INSULIN HUMAN
     Indication: Product used for unknown indication
     Dosage: ACCORDING TO PLAN
     Route: 058
  16. FORMOTEROL [Concomitant]
     Active Substance: FORMOTEROL
     Indication: Product used for unknown indication
     Dosage: 12 MICROGRAM DAILY; 1-0-0-0, CAPSULES FOR INHALATION
  17. PREGABALIN [Concomitant]
     Active Substance: PREGABALIN
     Indication: Product used for unknown indication
     Dosage: 150 MILLIGRAM DAILY; 1-0-1-0
  18. INSULIN GLARGINE [Concomitant]
     Active Substance: INSULIN GLARGINE
     Indication: Product used for unknown indication
     Dosage: ACCORDING TO PLAN
     Route: 058
  19. ASPIRIN [Concomitant]
     Active Substance: ASPIRIN
     Indication: Product used for unknown indication
     Dosage: 100 MILLIGRAM DAILY; 0-1-0-0, METERED DOSE INHALER

REACTIONS (9)
  - Acute kidney injury [Recovering/Resolving]
  - Dyspnoea exertional [Recovering/Resolving]
  - Condition aggravated [Recovering/Resolving]
  - Rash [Recovering/Resolving]
  - Oedema peripheral [Recovering/Resolving]
  - Dry skin [Recovering/Resolving]
  - Renal impairment [Unknown]
  - Product prescribing error [Unknown]
  - Product prescribing error [Unknown]
